FAERS Safety Report 8789750 (Version 1)
Quarter: 2012Q4

REPORT INFORMATION
  Report Type: Spontaneous
  Country: GB (occurrence: None)
  Receive Date: 20120906
  Receipt Date: 20120906
  Transmission Date: 20130627
  Serious: Yes (Other)
  Sender: FDA-Public Use
  Company Number: 2012AP002729

PATIENT
  Age: 54 Year
  Sex: Female

DRUGS (3)
  1. OMEPRAZOLE (OMEPRAZOLE) [Suspect]
     Indication: ACID REFLUX (OESOPHAGEAL)
     Route: 048
     Dates: start: 20120701, end: 20120731
  2. CIMETIDINE (CIMETIDINE) [Concomitant]
  3. GAVISCON   /00237601/ (GAVISCON [Concomitant]

REACTIONS (6)
  - Nausea [None]
  - Gastrooesophageal reflux disease [None]
  - Anxiety [None]
  - Condition aggravated [None]
  - Malaise [None]
  - Dyspepsia [None]
